FAERS Safety Report 7220959-7 (Version None)
Quarter: 2011Q1

REPORT INFORMATION
  Report Type: 
  Country: None (occurrence: None)
  Receive Date: 20110112
  Receipt Date: 20110106
  Transmission Date: 20110831
  Serious: Yes (Death, Other)
  Sender: FDA-Public Use
  Company Number: FR-ASTRAZENECA-2010SE57444

PATIENT
  Age: 767 Month
  Sex: Female
  Weight: 55 kg

DRUGS (3)
  1. SYMBICORT [Suspect]
     Indication: ASTHMA
     Dosage: 160/4.5 UG BID
     Route: 055
     Dates: start: 20040101, end: 20100101
  2. ESTREVA [Concomitant]
     Indication: POSTMENOPAUSE
     Route: 062
     Dates: start: 20000101, end: 20090101
  3. PROGESTERONE [Concomitant]
     Indication: POSTMENOPAUSE
     Route: 048
     Dates: start: 20000101, end: 20090101

REACTIONS (1)
  - NON-SMALL CELL LUNG CANCER [None]
